FAERS Safety Report 5829065-7 (Version None)
Quarter: 2008Q3

REPORT INFORMATION
  Report Type: 
  Country: None (occurrence: None)
  Receive Date: 20080731
  Receipt Date: 20080719
  Transmission Date: 20090109
  Serious: Yes (Hospitalization)
  Sender: FDA-Public Use
  Company Number: IT-ASTRAZENECA-2008SE03562

PATIENT
  Age: 18142 Day
  Sex: Male

DRUGS (7)
  1. QUETIAPINE XR [Suspect]
     Indication: SCHIZOPHRENIA
     Route: 048
     Dates: start: 20080716, end: 20080716
  2. QUETIAPINE XR [Suspect]
     Route: 048
     Dates: start: 20080717, end: 20080717
  3. QUETIAPINE XR [Suspect]
     Route: 048
     Dates: start: 20080718, end: 20080718
  4. QUETIAPINE XR [Suspect]
     Route: 048
     Dates: start: 20080719, end: 20080719
  5. STUDY PROCEDURE [Suspect]
  6. LEXOTAN [Concomitant]
     Indication: ANXIETY
     Route: 048
     Dates: start: 20080716, end: 20080719
  7. EN [Concomitant]
     Indication: ANXIETY
     Route: 048
     Dates: start: 20080716, end: 20080719

REACTIONS (2)
  - PSYCHOMOTOR SKILLS IMPAIRED [None]
  - SCHIZOPHRENIA [None]
